FAERS Safety Report 10540665 (Version 2)
Quarter: 2014Q4

REPORT INFORMATION
  Report Type: Spontaneous
  Country: ES (occurrence: None)
  Receive Date: 20141022
  Receipt Date: 20141105
  Transmission Date: 20150529
  Serious: Yes (Life-Threatening)
  Sender: FDA-Public Use
  Company Number: ES2014GSK003858

PATIENT
  Age: 45 Year
  Sex: Female
  Weight: 52 kg

DRUGS (5)
  1. DICLOFENAC [Suspect]
     Active Substance: DICLOFENAC
     Dosage: UNK
     Route: 048
     Dates: start: 20130608
  2. RALTEGRAVIR [Concomitant]
     Active Substance: RALTEGRAVIR
  3. ABACAVIR [Suspect]
     Active Substance: ABACAVIR
     Dates: start: 20130313
  4. MARAVIROC [Suspect]
     Active Substance: MARAVIROC
     Indication: HIV INFECTION
     Dates: start: 20130313
  5. ESLICARBAZEPINE [Suspect]
     Active Substance: ESLICARBAZEPINE
     Indication: DRUG ABUSE
     Dosage: UNK
     Dates: start: 20130608

REACTIONS (3)
  - Drug abuse [None]
  - Intentional overdose [None]
  - Apparent life threatening event [None]

NARRATIVE: CASE EVENT DATE: 20130608
